FAERS Safety Report 22050123 (Version 4)
Quarter: 2023Q4

REPORT INFORMATION
  Report Type: Report from Study
  Country: PE (occurrence: PE)
  Receive Date: 20230301
  Receipt Date: 20231127
  Transmission Date: 20240110
  Serious: Yes (Hospitalization)
  Sender: FDA-Public Use
  Company Number: PE-JNJFOC-20230255611

PATIENT
  Age: 44 Year
  Sex: Female

DRUGS (2)
  1. SIMPONI [Suspect]
     Active Substance: GOLIMUMAB
     Indication: Rheumatoid arthritis
     Route: 058
     Dates: start: 20221014
  2. SIMPONI [Suspect]
     Active Substance: GOLIMUMAB

REACTIONS (6)
  - Nephritis [Not Recovered/Not Resolved]
  - Vaginal infection [Not Recovered/Not Resolved]
  - Urinary tract infection [Not Recovered/Not Resolved]
  - Hepatic failure [Not Recovered/Not Resolved]
  - Haemoglobin decreased [Not Recovered/Not Resolved]
  - Hypersensitivity [Not Recovered/Not Resolved]

NARRATIVE: CASE EVENT DATE: 20230201
